FAERS Safety Report 9305584 (Version 1)
Quarter: 2013Q2

REPORT INFORMATION
  Report Type: Spontaneous
  Country: US (occurrence: None)
  Receive Date: 20130522
  Receipt Date: 20130522
  Transmission Date: 20140414
  Serious: No
  Sender: FDA-Public Use
  Company Number: None

PATIENT
  Age: 39 Year
  Sex: Female

DRUGS (1)
  1. COPAXONE [Suspect]
     Dosage: AS DIRECTED BY YOUR PHYSICIAN. ^KEEP REFRIGERATED^.
     Route: 058

REACTIONS (3)
  - Chills [None]
  - Hyperhidrosis [None]
  - Arthralgia [None]
